FAERS Safety Report 10061024 (Version 1)
Quarter: 2014Q2

REPORT INFORMATION
  Report Type: Report from Study
  Country: BR (occurrence: BR)
  Receive Date: 20140405
  Receipt Date: 20140405
  Transmission Date: 20141212
  Serious: Yes (Death, Hospitalization, Other)
  Sender: FDA-Public Use
  Company Number: PHHY2014BR040676

PATIENT
  Age: 91 Year
  Sex: Male

DRUGS (1)
  1. EXELON PATCH [Suspect]
     Dosage: 9 MG/5 CM2 (DAILY DOSE: 4.6 MG/24 HOURS)
     Route: 062
     Dates: end: 20140324

REACTIONS (16)
  - Cerebrovascular accident [Fatal]
  - Ageusia [Fatal]
  - Dysarthria [Fatal]
  - Altered state of consciousness [Fatal]
  - Hypoaesthesia [Fatal]
  - Mobility decreased [Fatal]
  - Dysphagia [Fatal]
  - Septic shock [Fatal]
  - Pneumonia [Fatal]
  - Dyspnoea [Fatal]
  - Asthenia [Fatal]
  - Cardiac fibrillation [Fatal]
  - Hypertension [Fatal]
  - Cough [Unknown]
  - Eating disorder [Unknown]
  - Fatigue [Unknown]
